FAERS Safety Report 24317765 (Version 1)
Quarter: 2024Q3

REPORT INFORMATION
  Report Type: Spontaneous
  Country: ES (occurrence: ES)
  Receive Date: 20240913
  Receipt Date: 20240913
  Transmission Date: 20241016
  Serious: Yes (Death, Hospitalization)
  Sender: FRESENIUS KABI
  Company Number: ES-PFIZER INC-2020385389

PATIENT
  Age: 67 Year
  Sex: Female
  Weight: 48 kg

DRUGS (4)
  1. IRINOTECAN HYDROCHLORIDE [Suspect]
     Active Substance: IRINOTECAN HYDROCHLORIDE
     Indication: Colorectal cancer metastatic
     Dosage: 253.44 MG, CYCLIC (EVERY 2 WEEKS)?FORM OF ADMIN - SOLUTION FOR INJECTION
     Route: 042
     Dates: start: 20180802, end: 20180802
  2. LEUCOVORIN [Suspect]
     Active Substance: LEUCOVORIN\LEUCOVORIN CALCIUM
     Indication: Product used for unknown indication
     Dosage: 563.2 MG, CYCLIC (EVERY TWO WEEKS)
     Route: 042
     Dates: start: 20180802, end: 20180802
  3. FLUOROURACIL [Suspect]
     Active Substance: FLUOROURACIL
     Indication: Colorectal cancer metastatic
     Dosage: 3379.2 MG, CYCLIC (EVERY 2 WEEKS)
     Route: 042
     Dates: start: 20180802, end: 20180802
  4. FLUOROURACIL [Suspect]
     Active Substance: FLUOROURACIL
     Dosage: 563.2 MG, CYCLIC, BOLUS
     Route: 042
     Dates: start: 20180802, end: 20180802

REACTIONS (3)
  - Septic shock [Fatal]
  - Diarrhoea [Recovered/Resolved]
  - Neutropenia [Recovered/Resolved]

NARRATIVE: CASE EVENT DATE: 20180812
